FAERS Safety Report 24253119 (Version 1)
Quarter: 2024Q3

REPORT INFORMATION
  Report Type: Spontaneous
  Country: NL (occurrence: NL)
  Receive Date: 20240827
  Receipt Date: 20240827
  Transmission Date: 20241016
  Serious: Yes (Hospitalization, Disabling)
  Sender: TEVA
  Company Number: None

PATIENT
  Age: 55 Year
  Sex: Female
  Weight: 55 kg

DRUGS (1)
  1. LEVOTHYROXINE [Suspect]
     Active Substance: LEVOTHYROXINE\LEVOTHYROXINE SODIUM
     Indication: Autoimmune thyroiditis
     Dosage: LEVOTHYROXINE SODIUM TEVA
     Route: 065
     Dates: start: 20220101

REACTIONS (1)
  - Migraine [Not Recovered/Not Resolved]
